FAERS Safety Report 17208931 (Version 1)
Quarter: 2019Q4

REPORT INFORMATION
  Report Type: Spontaneous
  Country: NO (occurrence: NO)
  Receive Date: 20191227
  Receipt Date: 20191227
  Transmission Date: 20200122
  Serious: Yes (Life-Threatening, Hospitalization)
  Sender: FDA-Public Use
  Company Number: NO-B.I. PHARMACEUTICALS,INC./RIDGEFIELD-2019-12-122173

PATIENT
  Age: 82 Year
  Sex: Male

DRUGS (8)
  1. EUCREAS [Concomitant]
     Active Substance: METFORMIN HYDROCHLORIDE\VILDAGLIPTIN
     Indication: TYPE 2 DIABETES MELLITUS
     Dosage: ADDITIONAL INFO: METFORMIN: 1000MG; VILDAGLIPTIN: 50MG;
     Route: 048
     Dates: start: 2019
  2. BISOPROLOL [Concomitant]
     Active Substance: BISOPROLOL
     Indication: PRODUCT USED FOR UNKNOWN INDICATION
     Route: 065
  3. RAMIPRIL. [Concomitant]
     Active Substance: RAMIPRIL
     Indication: PRODUCT USED FOR UNKNOWN INDICATION
     Route: 048
  4. TARIVID [OFLOXACIN] [Concomitant]
     Indication: URINARY TRACT INFECTION
     Dosage: ADDITIONAL INFO: OFLOXACIN: 200MG;
     Route: 048
     Dates: start: 20191205
  5. DUODART [Concomitant]
     Active Substance: DUTASTERIDE\TAMSULOSIN
     Indication: PRODUCT USED FOR UNKNOWN INDICATION
     Dosage: ADDITIONAL INFO: DUTASTERIDE: 0.5MG; TAMSULOSIN: 0.4MG;
     Route: 048
  6. HIPREX [METHENAMINE HIPPURATE] [Concomitant]
     Indication: PRODUCT USED FOR UNKNOWN INDICATION
     Dosage: ADDITIONAL INFO: METHENAMINE: 1G;
     Route: 048
  7. JARDIANCE [Suspect]
     Active Substance: EMPAGLIFLOZIN
     Indication: TYPE 2 DIABETES MELLITUS
     Dosage: ADDITIONAL INFO: EMPAGLIFLOZIN: 10MG;
     Route: 048
     Dates: start: 201911, end: 20191209
  8. TRIOBE [CYANOCOBALAMIN;FOLIC ACID;PYRIDOXINE] [Concomitant]
     Indication: PRODUCT USED FOR UNKNOWN INDICATION
     Dosage: ADDITIONAL INFO: CYANOCOBALAMIN: 0.5MG; FOLIC ACID: 0.8MG; PYRIDOXINE: 3MG;
     Route: 048

REACTIONS (1)
  - Euglycaemic diabetic ketoacidosis [Recovered/Resolved]

NARRATIVE: CASE EVENT DATE: 20191209
